FAERS Safety Report 25350150 (Version 1)
Quarter: 2025Q2

REPORT INFORMATION
  Report Type: Spontaneous
  Country: HU (occurrence: HU)
  Receive Date: 20250523
  Receipt Date: 20250523
  Transmission Date: 20250717
  Serious: Yes (Other)
  Sender: ROCHE
  Company Number: HU-ROCHE-10000283422

PATIENT
  Age: 72 Year
  Sex: Female

DRUGS (3)
  1. AVASTIN [Suspect]
     Active Substance: BEVACIZUMAB
     Indication: Ovarian cancer stage III
     Route: 065
  2. TAXOL [Concomitant]
     Active Substance: PACLITAXEL
     Indication: Ovarian cancer stage III
  3. CARBOL [CARBOPLATIN] [Concomitant]
     Indication: Ovarian cancer stage III

REACTIONS (6)
  - Nasal obstruction [Unknown]
  - Vein disorder [Unknown]
  - Mouth breathing [Unknown]
  - Insomnia [Unknown]
  - Oral pain [Unknown]
  - Poor venous access [Unknown]
